FAERS Safety Report 9380538 (Version 1)
Quarter: 2013Q3

REPORT INFORMATION
  Report Type: Spontaneous
  Country: US (occurrence: US)
  Receive Date: 20130702
  Receipt Date: 20130702
  Transmission Date: 20140515
  Serious: Yes (Hospitalization, Disabling, Other)
  Sender: FDA-Public Use
  Company Number: US-PFIZER INC-2013195991

PATIENT
  Age: 57 Year
  Sex: Male
  Weight: 112.47 kg

DRUGS (1)
  1. LYRICA [Suspect]
     Indication: FIBROMYALGIA
     Dosage: 150 MG, 2X/DAY
     Route: 048

REACTIONS (4)
  - Impaired gastric emptying [Unknown]
  - Intestinal obstruction [Unknown]
  - Pain [Unknown]
  - Ill-defined disorder [Unknown]
